FAERS Safety Report 20056012 (Version 1)
Quarter: 2021Q4

REPORT INFORMATION
  Report Type: Spontaneous
  Country: US (occurrence: US)
  Receive Date: 20211111
  Receipt Date: 20211111
  Transmission Date: 20220304
  Serious: No
  Sender: FDA-Public Use
  Company Number: US-CIPLA LTD.-2021US06729

PATIENT

DRUGS (2)
  1. METOPROLOL [Suspect]
     Active Substance: METOPROLOL
     Indication: Atrial fibrillation
     Dosage: 100 MILLIGRAM, QD
     Route: 065
     Dates: start: 202109
  2. METOPROLOL SUCCINATE [Suspect]
     Active Substance: METOPROLOL SUCCINATE
     Indication: Atrial fibrillation
     Dosage: 100 MILLIGRAM, QD (MANUFACTURER: TEVA)
     Route: 065
     Dates: start: 202110

REACTIONS (9)
  - Chest discomfort [Unknown]
  - Malaise [Unknown]
  - Heart rate increased [Unknown]
  - Abdominal pain upper [Unknown]
  - Adverse event [Unknown]
  - Product substitution issue [Unknown]
  - Adverse drug reaction [Unknown]
  - Anxiety [Unknown]
  - Diarrhoea [Unknown]

NARRATIVE: CASE EVENT DATE: 20210101
